FAERS Safety Report 8326309-7 (Version None)
Quarter: 2012Q2

REPORT INFORMATION
  Report Type: 
  Country: None (occurrence: None)
  Receive Date: 20120501
  Receipt Date: 20120425
  Transmission Date: 20120825
  Serious: No
  Sender: FDA-Public Use
  Company Number: US-PFIZER INC-2012103104

PATIENT
  Sex: Female
  Weight: 69 kg

DRUGS (2)
  1. TRAZODONE [Concomitant]
     Dosage: 50 MG, UNK
  2. PREMARIN [Suspect]
     Indication: HOT FLUSH
     Dosage: UNK, 1X/DAY
     Route: 048
     Dates: start: 20110101

REACTIONS (2)
  - VULVOVAGINAL PRURITUS [None]
  - VAGINAL PROLAPSE [None]
